FAERS Safety Report 13776896 (Version 1)
Quarter: 2017Q3

REPORT INFORMATION
  Report Type: Spontaneous
  Country: US (occurrence: US)
  Receive Date: 20170721
  Receipt Date: 20170721
  Transmission Date: 20171127
  Serious: Yes (Other)
  Sender: FDA-Public Use
  Company Number: None

PATIENT
  Age: 42 Year
  Sex: Female
  Weight: 72 kg

DRUGS (3)
  1. MONISTAT 3 3-DAY PRE-FILLED APPLICATORS [Suspect]
     Active Substance: MICONAZOLE NITRATE
     Indication: FUNGAL INFECTION
     Dosage: QUANTITY:1 PREFILLED APPLICAT;?
     Route: 067
     Dates: start: 20170719, end: 20170719
  2. BUPROPION. [Concomitant]
     Active Substance: BUPROPION
  3. ALLEGRA [Concomitant]
     Active Substance: FEXOFENADINE HYDROCHLORIDE

REACTIONS (5)
  - Chemical burn [None]
  - Pruritus [None]
  - Pain [None]
  - Burning sensation [None]
  - Swelling [None]

NARRATIVE: CASE EVENT DATE: 20170719
